FAERS Safety Report 4703189-X (Version None)
Quarter: 2005Q2

REPORT INFORMATION
  Report Type: 
  Country: None (occurrence: None)
  Receive Date: 20050629
  Receipt Date: 20050415
  Transmission Date: 20051028
  Serious: Yes (Hospitalization)
  Sender: FDA-Public Use
  Company Number: 2005AP02674

PATIENT
  Age: 13796 Day
  Sex: Female

DRUGS (3)
  1. NOLVADEX [Suspect]
     Indication: BREAST CANCER
     Route: 048
     Dates: start: 20050331, end: 20050408
  2. NOLVADEX [Suspect]
     Route: 048
     Dates: start: 20050520, end: 20050605
  3. ZOLADEX BC [Suspect]
     Indication: BREAST CANCER
     Route: 058
     Dates: start: 20050331

REACTIONS (2)
  - ABDOMINAL PAIN [None]
  - ENTEROCOLITIS [None]
